FAERS Safety Report 4562749-X (Version None)
Quarter: 2005Q1

REPORT INFORMATION
  Report Type: 
  Country: None (occurrence: None)
  Receive Date: 20050124
  Receipt Date: 20050110
  Transmission Date: 20050727
  Serious: Yes (Life-Threatening, Hospitalization, Disabling, Other)
  Sender: FDA-Public Use
  Company Number: 211587

PATIENT
  Age: 58 Year
  Sex: Male
  Weight: 105 kg

DRUGS (5)
  1. MABTHERA(RITUXIMAB) CONC FOR SOLUTION FOR INFUSION [Suspect]
     Indication: NON-HODGKIN'S LYMPHOMA
     Dosage: 900 MG, INTRAVENOUS
     Route: 042
     Dates: start: 20041110, end: 20041201
  2. CYCLOPHOSPHAMIDE [Concomitant]
  3. DOXORUBICIN (DOXORUBICIN HYDROCHLORIDE, DOXORUBICIN) [Concomitant]
  4. VINCRISTINE [Concomitant]
  5. METHOTREXATE [Concomitant]

REACTIONS (2)
  - CARDIAC FAILURE [None]
  - MYOCARDIAL INFARCTION [None]
